FAERS Safety Report 5367422-6 (Version None)
Quarter: 2007Q2

REPORT INFORMATION
  Report Type: 
  Country: None (occurrence: None)
  Receive Date: 20070622
  Receipt Date: 20061006
  Transmission Date: 20071010
  Serious: No
  Sender: FDA-Public Use
  Company Number: US-ASTRAZENECA-2006UW19476

PATIENT
  Age: 8 Month
  Sex: Male

DRUGS (2)
  1. PULMICORT RESPULES [Suspect]
     Indication: WHEEZING
     Route: 055
     Dates: start: 20061002
  2. XOPENEX [Suspect]

REACTIONS (6)
  - ABNORMAL BEHAVIOUR [None]
  - DECREASED APPETITE [None]
  - HEART RATE INCREASED [None]
  - IRRITABILITY [None]
  - MEDICATION ERROR [None]
  - PSYCHOMOTOR HYPERACTIVITY [None]
